FAERS Safety Report 6816358-X (Version None)
Quarter: 2010Q3

REPORT INFORMATION
  Report Type: 
  Country: None (occurrence: None)
  Receive Date: 20100705
  Receipt Date: 20100622
  Transmission Date: 20110219
  Serious: Yes (Hospitalization)
  Sender: FDA-Public Use
  Company Number: PHHY2010BE40932

PATIENT
  Sex: Male

DRUGS (5)
  1. GLEEVEC [Suspect]
     Indication: CHRONIC MYELOID LEUKAEMIA
     Dosage: 400 MG DAILY
     Dates: start: 20040501
  2. PANTOPRAZOLE [Concomitant]
     Indication: ABDOMINAL PAIN UPPER
     Dosage: ONCE DAILY
  3. SPIRONOLACTONE [Concomitant]
     Indication: OEDEMA
     Dosage: 100 MG DAILY
  4. LASIX [Concomitant]
     Dosage: 40 MG, BID
  5. CACIT VITAMINE D3 [Concomitant]

REACTIONS (1)
  - GLOMERULONEPHRITIS MEMBRANOUS [None]
